FAERS Safety Report 8801698 (Version 3)
Quarter: 2015Q1

REPORT INFORMATION
  Report Type: Report from Study
  Country: US (occurrence: US)
  Receive Date: 20120921
  Receipt Date: 20150316
  Transmission Date: 20150721
  Serious: Yes (Death, Hospitalization, Other)
  Sender: FDA-Public Use
  Company Number: US-ROCHE-1124310

PATIENT
  Sex: Female

DRUGS (8)
  1. AVASTIN [Suspect]
     Active Substance: BEVACIZUMAB
     Indication: LUNG NEOPLASM MALIGNANT
     Route: 042
     Dates: start: 20080114
  2. PERCOCET [Concomitant]
     Active Substance: ACETAMINOPHEN\OXYCODONE HYDROCHLORIDE
  3. CARBOPLATIN. [Concomitant]
     Active Substance: CARBOPLATIN
  4. CISPLATIN. [Concomitant]
     Active Substance: CISPLATIN
  5. ALOXI [Concomitant]
     Active Substance: PALONOSETRON HYDROCHLORIDE
  6. DECADRON [Concomitant]
     Active Substance: DEXAMETHASONE
  7. BENADRYL [Concomitant]
     Active Substance: DIPHENHYDRAMINE HYDROCHLORIDE
  8. TAXOL [Concomitant]
     Active Substance: PACLITAXEL

REACTIONS (8)
  - Hemiparesis [Unknown]
  - Lacunar infarction [Unknown]
  - Speech disorder [Unknown]
  - Disease progression [Unknown]
  - Death [Fatal]
  - Cerebrovascular accident [Unknown]
  - Musculoskeletal discomfort [Unknown]
  - Emotional distress [Unknown]
